FAERS Safety Report 25742525 (Version 1)
Quarter: 2025Q3

REPORT INFORMATION
  Report Type: Spontaneous
  Country: EU (occurrence: EU)
  Receive Date: 20250829
  Receipt Date: 20250829
  Transmission Date: 20251020
  Serious: Yes (Other)
  Sender: PFIZER
  Company Number: None

PATIENT
  Age: 27 Year
  Sex: Female
  Weight: 80 kg

DRUGS (2)
  1. MEDROL [Suspect]
     Active Substance: METHYLPREDNISOLONE
     Indication: Ligament sprain
     Route: 048
     Dates: start: 20250627
  2. OMEPRAZOLE [Concomitant]
     Active Substance: OMEPRAZOLE
     Indication: Epigastric discomfort
     Route: 048
     Dates: start: 20250627

REACTIONS (8)
  - Arrhythmia [Unknown]
  - Palpitations [Unknown]
  - Heart rate increased [Unknown]
  - Chromaturia [Unknown]
  - Tremor [Unknown]
  - Hot flush [Unknown]
  - Dry mouth [Unknown]
  - Off label use [Unknown]

NARRATIVE: CASE EVENT DATE: 20250601
